FAERS Safety Report 9554654 (Version 3)
Quarter: 2014Q1

REPORT INFORMATION
  Report Type: Spontaneous
  Country: US (occurrence: US)
  Receive Date: 20130925
  Receipt Date: 20140203
  Transmission Date: 20141002
  Serious: Yes (Hospitalization)
  Sender: FDA-Public Use
  Company Number: US-PFIZER INC-2013274241

PATIENT
  Age: 59 Year
  Sex: Female
  Weight: 97.05 kg

DRUGS (11)
  1. CELEBREX [Suspect]
     Indication: SPINAL OSTEOARTHRITIS
     Dosage: 200 MG, 1X/DAY
     Route: 048
  2. CELEBREX [Interacting]
     Indication: OSTEOARTHRITIS
  3. PRAVASTATIN SODIUM [Interacting]
     Indication: BLOOD CHOLESTEROL INCREASED
     Dosage: 40 MG, 2X/DAY
     Dates: start: 2013
  4. TRAMADOL HCL [Interacting]
     Indication: PAIN
     Dosage: 50 MG, 2X/DAY
     Route: 048
  5. PROTONIX [Interacting]
     Dosage: 40 MG, UNK
  6. METOPROLOL TARTRATE [Interacting]
     Dosage: 50 MG, 2X/DAY
  7. LEVOTHYROXINE SODIUM [Interacting]
     Indication: THYROID DISORDER
     Dosage: 25 UG, 1X/DAY
  8. TEMAZEPAM [Interacting]
     Indication: INSOMNIA
     Dosage: 30 MG, AS NEEDED
  9. WARFARIN [Interacting]
     Indication: BLOOD DISORDER
     Dosage: UNK
  10. TYLENOL [Interacting]
     Dosage: UNK, AS NEEDED
  11. HYDROCHLOROTHIAZIDE WITH TRIAMTERENE [Interacting]
     Indication: DIURETIC THERAPY
     Dosage: 37.5/25 MG, 1X/DAY
     Route: 048
     Dates: start: 201303

REACTIONS (5)
  - Drug interaction [Unknown]
  - Osteoarthritis [Unknown]
  - Blood potassium decreased [Unknown]
  - Blood cholesterol increased [Unknown]
  - Musculoskeletal stiffness [Unknown]
